FAERS Safety Report 5120621-0 (Version None)
Quarter: 2006Q3

REPORT INFORMATION
  Report Type: 
  Country: None (occurrence: None)
  Receive Date: 20060928
  Receipt Date: 20060915
  Transmission Date: 20061208
  Serious: Yes (Hospitalization)
  Sender: FDA-Public Use
  Company Number: 2006112525

PATIENT
  Age: 43 Year
  Sex: Male

DRUGS (7)
  1. AMLODIPINE [Suspect]
     Dosage: 350 MG
  2. PREDNISOLONE [Concomitant]
  3. ALLOPURINOL [Concomitant]
  4. DIAZEPAM [Concomitant]
  5. IBUPROFEN [Concomitant]
  6. ACETAMINOPHEN [Concomitant]
  7. TRAMADOL HCL [Concomitant]

REACTIONS (15)
  - ABDOMINAL TENDERNESS [None]
  - ALCOHOL USE [None]
  - BLOOD CREATININE INCREASED [None]
  - BLOOD LACTATE DEHYDROGENASE INCREASED [None]
  - BLOOD PRESSURE SYSTOLIC INCREASED [None]
  - CHEST PAIN [None]
  - CUSHINGOID [None]
  - FATIGUE [None]
  - FLUSHING [None]
  - GAMMA-GLUTAMYLTRANSFERASE INCREASED [None]
  - GOUTY TOPHUS [None]
  - INTENTIONAL OVERDOSE [None]
  - REFUSAL OF TREATMENT BY PATIENT [None]
  - SINUS TACHYCARDIA [None]
  - SUICIDE ATTEMPT [None]
